FAERS Safety Report 12978809 (Version 1)
Quarter: 2016Q4

REPORT INFORMATION
  Report Type: Spontaneous
  Country: US (occurrence: US)
  Receive Date: 20161128
  Receipt Date: 20161128
  Transmission Date: 20170207
  Serious: No
  Sender: FDA-Public Use
  Company Number: None

PATIENT

DRUGS (2)
  1. BRIMONIDINE SOL 0.2% [Suspect]
     Active Substance: BRIMONIDINE TARTRATE
  2. BRIMONIDINE 0.2%/BRINZOLAMID 1% [Suspect]
     Active Substance: BRIMONIDINE TARTRATE\BRINZOLAMIDE

REACTIONS (3)
  - Drug dispensing error [None]
  - Transcription medication error [None]
  - Wrong drug administered [None]
